FAERS Safety Report 4419956-6 (Version None)
Quarter: 2004Q2

REPORT INFORMATION
  Report Type: 
  Country: None (occurrence: None)
  Receive Date: 20040622
  Receipt Date: 20030902
  Transmission Date: 20050107
  Serious: Yes (Other)
  Sender: FDA-Public Use
  Company Number: 346056

PATIENT
  Sex: Male

DRUGS (1)
  1. XELODA [Suspect]
     Dosage: ORAL
     Route: 048

REACTIONS (1)
  - METASTASES TO LIVER [None]
